FAERS Safety Report 15849333 (Version 2)
Quarter: 2019Q1

REPORT INFORMATION
  Report Type: Spontaneous
  Country: US (occurrence: US)
  Receive Date: 20190121
  Receipt Date: 20190312
  Transmission Date: 20190417
  Serious: No
  Sender: FDA-Public Use
  Company Number: US-LEXICON PHARMACEUTICALS, INC-18-1606-01635

PATIENT
  Sex: Male

DRUGS (13)
  1. ASPIRIN. [Concomitant]
     Active Substance: ASPIRIN
  2. SOMATULINE [Concomitant]
     Active Substance: LANREOTIDE ACETATE
  3. TELOTRISTAT ETHYL [Suspect]
     Active Substance: TELOTRISTAT ETHYL
     Indication: CARCINOID TUMOUR
     Route: 048
     Dates: start: 20181117
  4. FOLIC ACID. [Concomitant]
     Active Substance: FOLIC ACID
  5. OSTEO BI-FLEX [Concomitant]
     Active Substance: CHONDROITIN SULFATE A\GLUCOSAMINE
  6. AFINITOR [Suspect]
     Active Substance: EVEROLIMUS
  7. AMLODIPINE BESYLATE VALSARTAN [Concomitant]
  8. ATORVASTATIN [Concomitant]
     Active Substance: ATORVASTATIN
  9. QUINAPRIL. [Concomitant]
     Active Substance: QUINAPRIL
  10. TELOTRISTAT ETHYL [Suspect]
     Active Substance: TELOTRISTAT ETHYL
     Indication: CHOLANGIOCARCINOMA
  11. FISH OIL [Concomitant]
     Active Substance: FISH OIL
  12. LOSARTAN. [Concomitant]
     Active Substance: LOSARTAN
  13. TELOTRISTAT ETHYL [Suspect]
     Active Substance: TELOTRISTAT ETHYL
     Indication: METASTASES TO LIVER

REACTIONS (3)
  - Rash [Not Recovered/Not Resolved]
  - Flatulence [Not Recovered/Not Resolved]
  - Dry skin [Unknown]

NARRATIVE: CASE EVENT DATE: 2018
